FAERS Safety Report 8156260-7 (Version None)
Quarter: 2012Q1

REPORT INFORMATION
  Report Type: 
  Country: None (occurrence: None)
  Receive Date: 20120222
  Receipt Date: 20120213
  Transmission Date: 20120608
  Serious: Yes (Hospitalization)
  Sender: FDA-Public Use
  Company Number: GB-ASTRAZENECA-2012SE09371

PATIENT
  Age: 25817 Day
  Sex: Male

DRUGS (3)
  1. LOPERAMIDE HCL [Concomitant]
     Indication: DIARRHOEA
     Dosage: AS REQUIRED
     Route: 048
     Dates: start: 20120119
  2. VANDETANIB [Suspect]
     Indication: THYROID CANCER
     Route: 048
     Dates: start: 20120116, end: 20120210
  3. LEVOTHYROXINE SODIUM [Concomitant]
     Indication: THYROXINE THERAPY
     Route: 048

REACTIONS (1)
  - PULMONARY EMBOLISM [None]
